FAERS Safety Report 7601846-9 (Version None)
Quarter: 2011Q3

REPORT INFORMATION
  Report Type: 
  Country: None (occurrence: None)
  Receive Date: 20110711
  Receipt Date: 20110705
  Transmission Date: 20111222
  Serious: Yes (Hospitalization, Congenital Anomaly, Other)
  Sender: FDA-Public Use
  Company Number: US-PFIZER INC-2011151282

PATIENT
  Sex: Female

DRUGS (1)
  1. ZOLOFT [Suspect]
     Indication: DEPRESSION
     Dosage: UNK
     Route: 064
     Dates: start: 19960201

REACTIONS (4)
  - HEARING IMPAIRED [None]
  - MATERNAL EXPOSURE DURING PREGNANCY [None]
  - HEART DISEASE CONGENITAL [None]
  - BRAIN HYPOXIA [None]
